FAERS Safety Report 4435708-5 (Version None)
Quarter: 2004Q3

REPORT INFORMATION
  Report Type: 
  Country: None (occurrence: None)
  Receive Date: 20040726
  Receipt Date: 20040430
  Transmission Date: 20050211
  Serious: No
  Sender: FDA-Public Use
  Company Number: USA040465635

PATIENT
  Age: 71 Year
  Sex: Female
  Weight: 82 kg

DRUGS (2)
  1. FORTEO [Suspect]
     Indication: OSTEOPOROSIS
     Dosage: 20 UG/1 DAY
     Dates: start: 20040318
  2. ATENOLOL [Concomitant]

REACTIONS (5)
  - ABNORMAL BEHAVIOUR [None]
  - APATHY [None]
  - BLOOD PRESSURE DECREASED [None]
  - FEELING COLD [None]
  - LETHARGY [None]
